FAERS Safety Report 4279501-5 (Version None)
Quarter: 2004Q1

REPORT INFORMATION
  Report Type: 
  Country: None (occurrence: None)
  Receive Date: 20040123
  Receipt Date: 20040112
  Transmission Date: 20041129
  Serious: Yes (Hospitalization)
  Sender: FDA-Public Use
  Company Number: FR-JNJFOC-20040101980

PATIENT
  Age: 19 Year
  Sex: Female

DRUGS (3)
  1. REMICADE [Suspect]
     Indication: CROHN'S DISEASE
     Dosage: 290 MG, INTRAVENOUS
     Route: 042
     Dates: start: 20030709, end: 20030915
  2. AZATHIOPRINE [Concomitant]
  3. CORTICOTHERAPY (CORTICOSTEROIDS) [Concomitant]

REACTIONS (3)
  - LEUKOCYTOSIS [None]
  - PYELONEPHRITIS [None]
  - STAPHYLOCOCCAL INFECTION [None]
